FAERS Safety Report 17819402 (Version 2)
Quarter: 2020Q3

REPORT INFORMATION
  Report Type: Report from Study
  Country: BR (occurrence: BR)
  Receive Date: 20200523
  Receipt Date: 20200930
  Transmission Date: 20201102
  Serious: Yes (Other)
  Sender: FDA-Public Use
  Company Number: NVSC2020BR140180

PATIENT
  Age: 53 Year
  Sex: Female

DRUGS (4)
  1. GILENYA [Suspect]
     Active Substance: FINGOLIMOD HYDROCHLORIDE
     Indication: MULTIPLE SCLEROSIS
     Dosage: UNK (START DATE JUL OR AUG?2019)
     Route: 065
     Dates: end: 20200123
  2. GILENYA [Suspect]
     Active Substance: FINGOLIMOD HYDROCHLORIDE
     Dosage: UNK
     Route: 065
     Dates: start: 20190918
  3. PACLITAXEL. [Suspect]
     Active Substance: PACLITAXEL
     Indication: NEOPLASM MALIGNANT
     Dosage: UNK (EVERY THURSDAY AT THE HOSPITAL / 12 SESSIONS)
     Route: 065
     Dates: start: 20200430
  4. CYCLOPHOSPHAMIDE. [Concomitant]
     Active Substance: CYCLOPHOSPHAMIDE
     Indication: NEOPLASM MALIGNANT
     Dosage: UNK (EVERY THURSDAY AT THE HOSPITAL / 4 SESSIONS)
     Route: 065
     Dates: start: 20200123, end: 20200401

REACTIONS (7)
  - Neoplasm malignant [Recovering/Resolving]
  - Limb injury [Not Recovered/Not Resolved]
  - Benign breast neoplasm [Unknown]
  - Nodule [Recovered/Resolved]
  - Breast cancer [Recovering/Resolving]
  - Musculoskeletal stiffness [Unknown]
  - Pain [Unknown]

NARRATIVE: CASE EVENT DATE: 201909
